FAERS Safety Report 10153861 (Version 2)
Quarter: 2014Q2

REPORT INFORMATION
  Report Type: Spontaneous
  Country: JP (occurrence: JP)
  Receive Date: 20140506
  Receipt Date: 20140506
  Transmission Date: 20141212
  Serious: Yes (Hospitalization, Other)
  Sender: FDA-Public Use
  Company Number: JP-BRISTOL-MYERS SQUIBB COMPANY-20604179

PATIENT
  Age: 71 Year
  Sex: Female

DRUGS (5)
  1. ABILIFY [Suspect]
     Indication: DEMENTIA WITH LEWY BODIES
     Dosage: 3MG:14JAN-31JAN14; 6MG:1FEB14-5FEB14; 9MG:06FEB-09FEB14; 12MG: 18FEB14-05MAR14
     Route: 048
     Dates: start: 20140114, end: 20140305
  2. REMINYL [Suspect]
     Route: 048
     Dates: start: 20140225, end: 20140305
  3. RESLIN [Suspect]
     Route: 048
     Dates: start: 20140123, end: 20140317
  4. TETRAMIDE [Suspect]
     Route: 048
     Dates: start: 20140130
  5. RIVOTRIL [Concomitant]
     Dates: start: 20140114

REACTIONS (3)
  - Parkinsonism [Recovered/Resolved]
  - Hallucination, visual [Recovered/Resolved]
  - Off label use [Unknown]
